FAERS Safety Report 9756357 (Version 3)
Quarter: 2014Q2

REPORT INFORMATION
  Report Type: Spontaneous
  Country: US (occurrence: US)
  Receive Date: 20131213
  Receipt Date: 20140620
  Transmission Date: 20141212
  Serious: Yes (Hospitalization)
  Sender: FDA-Public Use
  Company Number: US-LUNDBECK-DKLU1095893

PATIENT
  Age: 1 Year
  Sex: Female

DRUGS (9)
  1. SABRIL (FOR ORAL SOLUTION) [Suspect]
     Indication: INFANTILE SPASMS
     Route: 048
     Dates: start: 20131024
  2. SABRIL (FOR ORAL SOLUTION) [Suspect]
     Dates: start: 20131109
  3. SABRIL (FOR ORAL SOLUTION) [Suspect]
     Dates: start: 20131119
  4. SABRIL (FOR ORAL SOLUTION) [Suspect]
     Dates: start: 20131127
  5. SABRIL (FOR ORAL SOLUTION) [Suspect]
     Dates: start: 20131129
  6. SABRIL (FOR ORAL SOLUTION) [Suspect]
     Route: 048
     Dates: start: 20131114, end: 20140613
  7. CLONAZEPAM [Concomitant]
     Indication: PRODUCT USED FOR UNKNOWN INDICATION
     Dates: start: 20121019
  8. PREDNISONE [Concomitant]
     Indication: PRODUCT USED FOR UNKNOWN INDICATION
     Dates: start: 20120831
  9. PREDNISONE [Concomitant]
     Dates: start: 20131012

REACTIONS (7)
  - Dehydration [Recovered/Resolved]
  - Status epilepticus [Unknown]
  - Hypophagia [Unknown]
  - Pyrexia [Recovered/Resolved]
  - Lethargy [Recovered/Resolved]
  - Diarrhoea [Recovered/Resolved]
  - Vomiting [Recovered/Resolved]
